FAERS Safety Report 14533923 (Version 1)
Quarter: 2018Q1

REPORT INFORMATION
  Report Type: Spontaneous
  Country: US (occurrence: US)
  Receive Date: 20180215
  Receipt Date: 20180215
  Transmission Date: 20180509
  Serious: No
  Sender: FDA-Public Use
  Company Number: US-OTSUKA-2017_021199

PATIENT
  Age: 30 Year
  Sex: Male

DRUGS (2)
  1. FLUDARABINE [Suspect]
     Active Substance: FLUDARABINE PHOSPHATE
     Indication: EX VIVO GENE THERAPY
     Dosage: 40 MG/M2, QD (FOR 3 DAYS)
     Route: 065
  2. BUSULFEX [Suspect]
     Active Substance: BUSULFAN
     Indication: EX VIVO GENE THERAPY
     Dosage: 3.2 MG/KG, QD (FOR 3 DAYS)
     Route: 065

REACTIONS (1)
  - Product use in unapproved indication [Unknown]
